FAERS Safety Report 12766796 (Version 3)
Quarter: 2016Q4

REPORT INFORMATION
  Report Type: Spontaneous
  Country: US (occurrence: US)
  Receive Date: 20160921
  Receipt Date: 20161126
  Transmission Date: 20170207
  Serious: No
  Sender: FDA-Public Use
  Company Number: PHEH2016US023625

PATIENT
  Sex: Male

DRUGS (1)
  1. TASIGNA [Suspect]
     Active Substance: NILOTINIB
     Indication: CHRONIC MYELOID LEUKAEMIA
     Dosage: UNK
     Route: 065

REACTIONS (10)
  - Splenomegaly [Unknown]
  - Pain [Unknown]
  - Influenza [Unknown]
  - Gallbladder disorder [Unknown]
  - Oropharyngeal pain [Unknown]
  - Cholelithiasis [Unknown]
  - White blood cell count abnormal [Unknown]
  - Kidney enlargement [Unknown]
  - Abdominal discomfort [Unknown]
  - Full blood count decreased [Unknown]
